FAERS Safety Report 25673128 (Version 2)
Quarter: 2025Q3

REPORT INFORMATION
  Report Type: Spontaneous
  Country: US (occurrence: US)
  Receive Date: 20250813
  Receipt Date: 20250902
  Transmission Date: 20251020
  Serious: Yes (Hospitalization, Other)
  Sender: ABBVIE
  Company Number: US-ABBVIE-6409309

PATIENT
  Age: 75 Year
  Sex: Male

DRUGS (13)
  1. VRAYLAR [Suspect]
     Active Substance: CARIPRAZINE
     Indication: Major depression
     Route: 048
     Dates: start: 20250130
  2. VRAYLAR [Suspect]
     Active Substance: CARIPRAZINE
     Indication: Major depression
     Dosage: DOSE: 1.5MG ON MONDAYS AND THURSDAYS?FREQUENCY: TWICE WEEKLY
     Route: 048
     Dates: start: 2025
  3. VRAYLAR [Suspect]
     Active Substance: CARIPRAZINE
     Indication: Major depression
     Route: 048
     Dates: start: 2025
  4. Xalatan 0.005 % eye drops [Concomitant]
     Indication: Product used for unknown indication
     Route: 047
  5. TIMOLOL MALEATE [Concomitant]
     Active Substance: TIMOLOL MALEATE
     Indication: Product used for unknown indication
     Dosage: DOSE : 0.5 % EYE DROPS?FREQUENCY: TWO TIMES EVERY DAY
     Route: 047
  6. D3 5000 [Concomitant]
     Indication: Product used for unknown indication
     Route: 048
  7. SPRAVATO [Suspect]
     Active Substance: ESKETAMINE
     Indication: Depression
     Route: 065
     Dates: start: 20250219
  8. VALSARTAN [Concomitant]
     Active Substance: VALSARTAN
     Indication: Product used for unknown indication
     Route: 048
  9. ASPIRIN [Concomitant]
     Active Substance: ASPIRIN
     Indication: Product used for unknown indication
     Route: 048
  10. METHYLPHENIDATE [Concomitant]
     Active Substance: METHYLPHENIDATE
     Indication: Product used for unknown indication
     Route: 065
     Dates: start: 20250508, end: 20250514
  11. XANAX [Concomitant]
     Active Substance: ALPRAZOLAM
     Indication: Anxiety
     Route: 048
  12. MICONAZOLE NITRATE [Concomitant]
     Active Substance: MICONAZOLE NITRATE
     Indication: Product used for unknown indication
     Dosage: 2 % TOPICAL SPRAY POWDER?TWO TIMES EVERY DAY SPRAY TO THE AFFECTED AREAS IN THE MORNING AND EVENING
     Route: 061
  13. MELATONIN [Concomitant]
     Active Substance: MELATONIN
     Indication: Product used for unknown indication
     Route: 065

REACTIONS (11)
  - Hospitalisation [Unknown]
  - Decreased appetite [Unknown]
  - Asthenia [Unknown]
  - Anhedonia [Unknown]
  - Depression [Not Recovered/Not Resolved]
  - Erythema [Unknown]
  - Oedema peripheral [Not Recovered/Not Resolved]
  - Deafness [Unknown]
  - Dizziness [Unknown]
  - Dizziness [Unknown]
  - Urinary tract infection [Unknown]

NARRATIVE: CASE EVENT DATE: 20240909
